FAERS Safety Report 4850366-3 (Version None)
Quarter: 2005Q4

REPORT INFORMATION
  Report Type: 
  Country: None (occurrence: None)
  Receive Date: 20051104
  Receipt Date: 20051018
  Transmission Date: 20060501
  Serious: No
  Sender: FDA-Public Use
  Company Number: 218373

PATIENT
  Age: 61 Year
  Sex: Female

DRUGS (8)
  1. RAPTIVA [Suspect]
     Indication: PSORIASIS
     Dosage: 0.8 ML, 1/WEEK, SUBCUTANEOUS
     Route: 058
  2. TIAZAC [Concomitant]
  3. RYTHMOL [Concomitant]
  4. LANOXIN [Concomitant]
  5. PREDNISONE [Concomitant]
  6. FUROSEMIDE [Concomitant]
  7. POTASSIUM (POTASSIUM NOS) [Concomitant]
  8. INSULIN [Concomitant]

REACTIONS (1)
  - DRUG INEFFECTIVE [None]
